FAERS Safety Report 7047833-3 (Version None)
Quarter: 2010Q4

REPORT INFORMATION
  Report Type: 
  Country: None (occurrence: None)
  Receive Date: 20101015
  Receipt Date: 20101005
  Transmission Date: 20110411
  Serious: No
  Sender: FDA-Public Use
  Company Number: US-PFIZER INC-2010126941

PATIENT
  Sex: Female
  Weight: 90.703 kg

DRUGS (7)
  1. LYRICA [Suspect]
     Indication: TRIGEMINAL NEURALGIA
     Dosage: 2 TABLET,DAILY DOSE: 2- 75MG TABLETS
     Route: 065
     Dates: start: 20100501
  2. NIASPAN [Suspect]
     Indication: BLOOD CHOLESTEROL INCREASED
     Dosage: 500 MG, EVERY NIGHT
     Route: 065
     Dates: start: 20100901
  3. ACETAMINOPHEN AND HYDROCODONE BITARTRATE [Suspect]
     Indication: TRIGEMINAL NEURALGIA
     Dosage: 5/325 MG AS NEEDED
     Dates: start: 20100101
  4. ACETYLSALICYLIC ACID [Concomitant]
     Dosage: 1/2 HOUR BEFORE NIASPAN COATED
  5. LEVOTHYROXINE [Concomitant]
     Indication: HYPOTHYROIDISM
     Dosage: 0.125 MG, DAILY
  6. OMEPRAZOLE [Concomitant]
     Indication: GASTROOESOPHAGEAL REFLUX DISEASE
     Dosage: 20 MG, DAILY
  7. LISINOPRIL [Concomitant]
     Indication: HYPERTENSION
     Dosage: 20/12.5MG

REACTIONS (4)
  - ERYTHEMA [None]
  - FEAR [None]
  - PRURITUS [None]
  - SKIN WARM [None]
